FAERS Safety Report 4349146-7 (Version None)
Quarter: 2004Q2

REPORT INFORMATION
  Report Type: 
  Country: None (occurrence: None)
  Receive Date: 20040423
  Receipt Date: 20040415
  Transmission Date: 20050107
  Serious: Yes (Life-Threatening)
  Sender: FDA-Public Use
  Company Number: 04P-083-0257800-00

PATIENT
  Age: 76 Year
  Sex: Male

DRUGS (14)
  1. BIAXIN [Suspect]
     Indication: BRONCHOPNEUMONIA
     Dosage: 500 MG, 2 IN 1 D, PER ORAL
     Route: 048
     Dates: start: 20040301, end: 20040303
  2. ROCEPHIN [Suspect]
     Indication: BRONCHOPNEUMONIA
     Dosage: 1 GM, 1 IN 1 D, INTRAVENOUS
     Route: 042
     Dates: start: 20040301, end: 20040304
  3. RABEPRAZOLE SODIUM [Concomitant]
  4. CARVEDILOL [Concomitant]
  5. PROMAZINE HCL [Concomitant]
  6. LEVOTHYROXINE [Concomitant]
  7. ACETYLCYSTEINE [Concomitant]
  8. METHYLPREDNISOLONE [Concomitant]
  9. AMIODARONE HYDROCHLORIDE [Concomitant]
  10. FUROSEMIDE [Concomitant]
  11. DOPAMINE HYDROCHLORIDE [Concomitant]
  12. ZITHROMAX [Concomitant]
  13. ALLOPURINOL TAB [Concomitant]
  14. TORASEMIDE SODIUM [Concomitant]

REACTIONS (3)
  - DIALYSIS [None]
  - HYPERTENSIVE CRISIS [None]
  - MULTI-ORGAN FAILURE [None]
